FAERS Safety Report 15645054 (Version 3)
Quarter: 2020Q3

REPORT INFORMATION
  Report Type: Report from Study
  Country: FR (occurrence: FR)
  Receive Date: 20181121
  Receipt Date: 20191224
  Transmission Date: 20201104
  Serious: Yes (Other)
  Sender: FDA-Public Use
  Company Number: FR-JNJFOC-20181122906

PATIENT
  Age: 51 Year
  Sex: Female
  Weight: 68 kg

DRUGS (4)
  1. DEXAMETHASONE. [Suspect]
     Active Substance: DEXAMETHASONE
     Indication: PLASMA CELL MYELOMA
     Dosage: MOST RECENT/LAST DOSE ON 15?JUL?2019
     Route: 048
     Dates: start: 20170710
  2. DARATUMUMAB [Suspect]
     Active Substance: DARATUMUMAB
     Indication: PLASMA CELL MYELOMA
     Dosage: EVERY 2 MONTHS; MOST RECENT/LAST DOSE ON 15?JUL?2019
     Route: 042
     Dates: start: 20170710
  3. BORTEZOMIB. [Suspect]
     Active Substance: BORTEZOMIB
     Indication: PLASMA CELL MYELOMA
     Dosage: D1,4,8,11 OF EACH CYCLE
     Route: 058
     Dates: start: 20170710, end: 20180319
  4. THALIDOMIDE [Suspect]
     Active Substance: THALIDOMIDE
     Indication: PLASMA CELL MYELOMA
     Route: 048
     Dates: start: 20170710, end: 20171002

REACTIONS (1)
  - Hepatitis E [Recovered/Resolved]

NARRATIVE: CASE EVENT DATE: 20181112
